FAERS Safety Report 25141177 (Version 1)
Quarter: 2025Q1

REPORT INFORMATION
  Report Type: Spontaneous
  Country: US (occurrence: None)
  Receive Date: 20250330
  Receipt Date: 20250330
  Transmission Date: 20250409
  Serious: Yes (Disabling)
  Sender: FDA-CTU
  Company Number: None

PATIENT
  Age: 53 Year
  Sex: Male
  Weight: 92.25 kg

DRUGS (5)
  1. PAXLOVID [Suspect]
     Active Substance: NIRMATRELVIR\RITONAVIR
     Indication: COVID-19
     Dates: start: 20250218, end: 20250323
  2. VITAMINS [Concomitant]
     Active Substance: VITAMINS
  3. Omega3 [Concomitant]
  4. VITAMIN D [Concomitant]
     Active Substance: VITAMIN D NOS
  5. PROBIOTICS NOS [Concomitant]
     Active Substance: PROBIOTICS NOS

REACTIONS (5)
  - Scab [None]
  - Glossodynia [None]
  - Anorectal discomfort [None]
  - Dyschezia [None]
  - Mouth ulceration [None]

NARRATIVE: CASE EVENT DATE: 20250201
